FAERS Safety Report 17605518 (Version 1)
Quarter: 2020Q1

REPORT INFORMATION
  Report Type: Spontaneous
  Country: US (occurrence: US)
  Receive Date: 20200331
  Receipt Date: 20200331
  Transmission Date: 20200409
  Serious: Yes (Disabling, Other)
  Sender: FDA-Public Use
  Company Number: US-SA-2020SA077141

PATIENT
  Sex: Male

DRUGS (1)
  1. LANTUS [Suspect]
     Active Substance: INSULIN GLARGINE
     Indication: TYPE 1 DIABETES MELLITUS
     Dosage: 25 IU, BID (25 AM/25 PM)
     Route: 065

REACTIONS (10)
  - Blood glucose increased [Unknown]
  - Back injury [Unknown]
  - Stress [Unknown]
  - Hyposmia [Unknown]
  - Product odour abnormal [Unknown]
  - Hypersensitivity [Unknown]
  - Disability [Unknown]
  - Weight decreased [Unknown]
  - Post-traumatic stress disorder [Unknown]
  - Inappropriate schedule of product administration [Unknown]
